FAERS Safety Report 24654475 (Version 1)
Quarter: 2024Q4

REPORT INFORMATION
  Report Type: Other
  Country: CH (occurrence: CH)
  Receive Date: 20241122
  Receipt Date: 20241122
  Transmission Date: 20250114
  Serious: Yes (Hospitalization, Other)
  Sender: INCYTE
  Company Number: CH-INCYTE CORPORATION-2024IN012189

PATIENT

DRUGS (14)
  1. TAFASITAMAB [Suspect]
     Active Substance: TAFASITAMAB
     Indication: Diffuse large B-cell lymphoma
     Dosage: 2 CYCLES: 12 MG/KG I.E. 800 MG ON D1, D8, D15 AND D22
     Route: 065
     Dates: start: 20240806
  2. TAFASITAMAB [Suspect]
     Active Substance: TAFASITAMAB
     Dosage: 3RD CYCLE 12MG/KG I.E. 800MG ON D1 AND D8
     Route: 065
     Dates: end: 20241008
  3. LENALIDOMIDE [Suspect]
     Active Substance: LENALIDOMIDE
     Indication: Diffuse large B-cell lymphoma
     Dosage: 2 CYCLES: 25 MG/DAY FROM D1 TO D21, 3RD CYCLE FROM D1 TO D8
     Route: 065
     Dates: start: 20240806, end: 20241001
  4. LENALIDOMIDE [Suspect]
     Active Substance: LENALIDOMIDE
     Dosage: 25 MG/DAY (3RD CYCLE D8)
     Route: 065
     Dates: start: 20241001, end: 20241008
  5. ESOMEPRAZOLE [Suspect]
     Active Substance: ESOMEPRAZOLE
     Dosage: 20 MILLIGRAM  X 1/DAY
     Route: 065
     Dates: end: 20241015
  6. ALLOPURINOL [Suspect]
     Active Substance: ALLOPURINOL
     Dosage: 300 MILLIGRAM IN THE MORNING (FOR SEVERAL YEARS)
     Route: 065
     Dates: end: 20241015
  7. BACTRIM [Suspect]
     Active Substance: SULFAMETHOXAZOLE\TRIMETHOPRIM
     Dosage: 160 MILLIGRAM, 3X/WEEK
     Route: 065
     Dates: start: 20240807, end: 20241015
  8. IOHEXOL [Concomitant]
     Active Substance: IOHEXOL
     Indication: Product used for unknown indication
     Dosage: UNK
     Route: 065
     Dates: start: 20240730, end: 20240730
  9. ASPIRIN [Concomitant]
     Active Substance: ASPIRIN
     Indication: Product used for unknown indication
     Dosage: 100 MILLIGRAM 1X/DAY
     Route: 065
  10. CALCIMAGON [CALCIUM] [Concomitant]
     Indication: Product used for unknown indication
     Dosage: 500 MILLIGRAM 1X/DAY
     Route: 065
  11. PERINDOPRIL [Concomitant]
     Active Substance: PERINDOPRIL
     Indication: Product used for unknown indication
     Dosage: 5 MILLIGRAM 1X/DAY
     Route: 065
  12. VALTREX [Concomitant]
     Active Substance: VALACYCLOVIR HYDROCHLORIDE
     Indication: Product used for unknown indication
     Dosage: 500 MILLIGRAM 1X/DAY
     Route: 065
  13. ACETAMINOPHEN [Concomitant]
     Active Substance: ACETAMINOPHEN
     Indication: Product used for unknown indication
     Dosage: 1 GRAM MAX 3X/WEEK (AS NEEDED)
     Route: 065
  14. SODIUM PICOSULFATE [Concomitant]
     Active Substance: SODIUM PICOSULFATE
     Indication: Product used for unknown indication
     Dosage: 5 GRAM MAX 3X/WEEK (AS NEEDED)
     Route: 065

REACTIONS (2)
  - Dermatitis exfoliative generalised [Recovering/Resolving]
  - Rash maculo-papular [Recovering/Resolving]

NARRATIVE: CASE EVENT DATE: 20241015
